FAERS Safety Report 10925530 (Version 1)
Quarter: 2015Q1

REPORT INFORMATION
  Report Type: Spontaneous
  Country: US (occurrence: US)
  Receive Date: 20150318
  Receipt Date: 20150318
  Transmission Date: 20150721
  Serious: Yes (Hospitalization, Other)
  Sender: FDA-Public Use
  Company Number: US-PFIZER INC-2015093973

PATIENT
  Age: 67 Year
  Sex: Female
  Weight: 74 kg

DRUGS (16)
  1. SIMVASTATIN. [Concomitant]
     Active Substance: SIMVASTATIN
     Dosage: 80MG TABLET AT BEDTIME
  2. TEMAZEPAM. [Concomitant]
     Active Substance: TEMAZEPAM
     Indication: INSOMNIA
     Dosage: 15MG TABLET AT BEDTIME
  3. TEMAZEPAM. [Concomitant]
     Active Substance: TEMAZEPAM
     Indication: ANXIETY
  4. CALCIUM PLUS D [Concomitant]
     Active Substance: CALCIUM\VITAMIN D
     Dosage: 600 MG, 1X/DAY
  5. NEXIUM [Concomitant]
     Active Substance: ESOMEPRAZOLE MAGNESIUM
     Dosage: 40 MG, 1X/DAY
  6. SPIRIVA [Concomitant]
     Active Substance: TIOTROPIUM BROMIDE MONOHYDRATE
     Dosage: 18 ?G, 1X/DAY
  7. ASPIRIN. [Concomitant]
     Active Substance: ASPIRIN
     Dosage: 81 MG, 1X/DAY
  8. CELEBREX [Suspect]
     Active Substance: CELECOXIB
     Dosage: 200 MG, DAILY
  9. METFORMIN [Concomitant]
     Active Substance: METFORMIN HYDROCHLORIDE
     Indication: BLOOD GLUCOSE INCREASED
     Dosage: 500MG TABLET TWICE A DAY UNLESS BLOOD SUGARS WERE TOO HIGH THEN TOOK A THIRD ONE
  10. PULMICORT TURBUHALER [Concomitant]
     Active Substance: BUDESONIDE
     Dosage: 180MCG INHALATION 2 PUFF A DAY ONCE AT NIGHT ONCE IN THE MORNING
  11. ZOLOFT [Concomitant]
     Active Substance: SERTRALINE HYDROCHLORIDE
     Indication: DEPRESSION
     Dosage: ONE TABLET AT BEDTIME
  12. TYLENOL WITH CODEINE [Concomitant]
     Active Substance: ACETAMINOPHEN\CODEINE PHOSPHATE
     Indication: PAIN
     Dosage: AS NEEDED
  13. LASIX [Concomitant]
     Active Substance: FUROSEMIDE
     Dosage: 400 MG, 1X/DAY AS NEEDED
  14. LOSARTAN [Concomitant]
     Active Substance: LOSARTAN
     Dosage: 25 MG, 1X/DAY
  15. MAXZIDE [Concomitant]
     Active Substance: HYDROCHLOROTHIAZIDE\TRIAMTERENE
     Dosage: 50MG-75MG TABLET ONCE A DAY
  16. FISH OIL [Concomitant]
     Active Substance: FISH OIL
     Dosage: 1200 MG, 1X/DAY

REACTIONS (2)
  - Pulmonary haemorrhage [Unknown]
  - Candida infection [Unknown]

NARRATIVE: CASE EVENT DATE: 201008
